FAERS Safety Report 4920335-3 (Version None)
Quarter: 2006Q1

REPORT INFORMATION
  Report Type: 
  Country: None (occurrence: None)
  Receive Date: 20060223
  Receipt Date: 20050421
  Transmission Date: 20060701
  Serious: Yes (Hospitalization, Disabling)
  Sender: FDA-Public Use
  Company Number: US-MERCK-0504USA04242

PATIENT
  Age: 64 Year
  Sex: Male
  Weight: 161 kg

DRUGS (7)
  1. VIOXX [Suspect]
     Indication: ARTHRALGIA
     Route: 048
     Dates: start: 19990101, end: 20040901
  2. VIOXX [Suspect]
     Route: 048
     Dates: start: 19990101, end: 20040901
  3. LASIX [Concomitant]
     Route: 065
  4. DIOVAN [Concomitant]
     Route: 065
  5. GLUCOVANCE [Concomitant]
     Route: 065
  6. VERAPAMIL [Concomitant]
     Route: 065
  7. ALLOPURINOL [Concomitant]
     Route: 065

REACTIONS (11)
  - ATELECTASIS [None]
  - AZOTAEMIA [None]
  - CENTRAL LINE INFECTION [None]
  - CEREBROVASCULAR ACCIDENT [None]
  - CHEST PAIN [None]
  - HYPOXIA [None]
  - MYOCARDIAL INFARCTION [None]
  - OEDEMA PERIPHERAL [None]
  - PLEURAL EFFUSION [None]
  - POSTOPERATIVE FEVER [None]
  - SLEEP APNOEA SYNDROME [None]
